FAERS Safety Report 18061868 (Version 1)
Quarter: 2020Q3

REPORT INFORMATION
  Report Type: Spontaneous
  Country: FR (occurrence: FR)
  Receive Date: 20200723
  Receipt Date: 20200723
  Transmission Date: 20201103
  Serious: Yes (Hospitalization)
  Sender: FDA-Public Use
  Company Number: FR-MYLANLABS-2020M1066576

PATIENT
  Age: 58 Year
  Sex: Female

DRUGS (3)
  1. SULFADIAZINE. [Suspect]
     Active Substance: SULFADIAZINE
     Indication: WHIPPLE^S DISEASE
     Dosage: UNK
     Route: 065
  2. HYDROXYCHLOROQUINE [Suspect]
     Active Substance: HYDROXYCHLOROQUINE
     Indication: WHIPPLE^S DISEASE
     Dosage: UNK
     Route: 065
  3. DOXYCYCLINE. [Suspect]
     Active Substance: DOXYCYCLINE
     Indication: WHIPPLE^S DISEASE
     Dosage: UNK
     Route: 065

REACTIONS (1)
  - Drug ineffective [Unknown]
